FAERS Safety Report 20658686 (Version 1)
Quarter: 2022Q1

REPORT INFORMATION
  Report Type: Spontaneous
  Country: US (occurrence: None)
  Receive Date: 20220330
  Receipt Date: 20220330
  Transmission Date: 20220423
  Serious: Yes (Disabling)
  Sender: FDA-Public Use
  Company Number: None

PATIENT
  Age: 66 Year
  Sex: Female
  Weight: 54 kg

DRUGS (1)
  1. PROLIA [Suspect]
     Active Substance: DENOSUMAB
     Indication: Osteoporosis
     Dosage: OTHER QUANTITY : 1 INJECTION(S);?OTHER FREQUENCY : SINGLE INJECTION;?
     Route: 030
     Dates: start: 20210930, end: 20210930

REACTIONS (9)
  - Insomnia [None]
  - Night sweats [None]
  - Anxiety [None]
  - Myalgia [None]
  - Arthralgia [None]
  - Heart rate irregular [None]
  - Urinary tract infection [None]
  - Paraesthesia [None]
  - Burning sensation [None]

NARRATIVE: CASE EVENT DATE: 20210930
